FAERS Safety Report 21633172 (Version 2)
Quarter: 2022Q4

REPORT INFORMATION
  Report Type: Report from Study
  Country: US (occurrence: US)
  Receive Date: 20221123
  Receipt Date: 20221129
  Transmission Date: 20230113
  Serious: Yes (Hospitalization, Other)
  Sender: FDA-Public Use
  Company Number: US-PFIZER INC-PV202200103934

PATIENT
  Age: 59 Year
  Sex: Male
  Weight: 85.2 kg

DRUGS (16)
  1. ENCORAFENIB [Suspect]
     Active Substance: ENCORAFENIB
     Indication: Colorectal cancer metastatic
     Dosage: 300 MG, ONCE DAILY
     Route: 048
     Dates: start: 20220929, end: 20221116
  2. OXALIPLATIN [Suspect]
     Active Substance: OXALIPLATIN
     Indication: Colorectal cancer metastatic
     Dosage: 167.5 MG, EVERY 2 WEEKS
     Route: 042
     Dates: start: 20220929, end: 20221116
  3. CETUXIMAB [Suspect]
     Active Substance: CETUXIMAB
     Indication: Colorectal cancer metastatic
     Dosage: 1000 MG, EVERY 2 WEEKS
     Route: 042
     Dates: start: 20220929, end: 20221116
  4. FLUOROURACIL [Suspect]
     Active Substance: FLUOROURACIL
     Indication: Colorectal cancer metastatic
     Dosage: 800 MG, EVERY 2 WEEKS
     Route: 040
     Dates: start: 20220929, end: 20221116
  5. FLUOROURACIL [Suspect]
     Active Substance: FLUOROURACIL
     Dosage: 4725 MG, EVERY 2 WEEKS
     Route: 041
     Dates: start: 20220929, end: 20221116
  6. LEUCOVORIN [Suspect]
     Active Substance: LEUCOVORIN
     Indication: Colorectal cancer metastatic
     Dosage: 800 MG, EVERY 2 WEEKS
     Route: 042
     Dates: start: 20220929, end: 20221116
  7. ZOFRAN [Concomitant]
     Active Substance: ONDANSETRON HYDROCHLORIDE
     Indication: Nausea
     Dosage: 8 MG, Q8HR AS NEEDED
     Route: 048
     Dates: start: 20221005
  8. ZOFRAN [Concomitant]
     Active Substance: ONDANSETRON HYDROCHLORIDE
     Indication: Vomiting
  9. TENORMIN [Concomitant]
     Active Substance: ATENOLOL
     Indication: Hypertension
     Dosage: 100 MG, 1X/DAY
     Route: 048
     Dates: start: 20130708, end: 20221112
  10. VARUBI [ROLAPITANT HYDROCHLORIDE MONOHYDRATE] [Concomitant]
     Indication: Nausea
     Dosage: 180 MG, ONCE
     Route: 048
     Dates: start: 20221102
  11. VARUBI [ROLAPITANT HYDROCHLORIDE MONOHYDRATE] [Concomitant]
     Indication: Vomiting
  12. BENADRYL [Concomitant]
     Active Substance: DIPHENHYDRAMINE HYDROCHLORIDE
     Indication: Premedication
     Dosage: 50 MG, ONCE
     Route: 042
     Dates: start: 20221102
  13. DECADRON [Concomitant]
     Active Substance: DEXAMETHASONE
     Indication: Premedication
     Dosage: 12 MG, ONCE
     Route: 048
     Dates: start: 20221102
  14. IMODIUM A-D [Concomitant]
     Active Substance: LOPERAMIDE HYDROCHLORIDE
     Indication: Diarrhoea
     Dosage: 4 MG, AS NEEDED
     Route: 048
     Dates: start: 20221007
  15. LEXAPRO [Concomitant]
     Active Substance: ESCITALOPRAM OXALATE
     Indication: Depression
     Dosage: 10 MG, 1X/DAY
     Route: 048
     Dates: start: 20220504
  16. ZOVIRAX [Concomitant]
     Active Substance: ACYCLOVIR
     Indication: Herpes simplex
     Dosage: 800 MG, 1X/DAY
     Route: 048
     Dates: start: 2014

REACTIONS (3)
  - Sepsis [Recovered/Resolved]
  - Cellulitis [Recovering/Resolving]
  - Metabolic encephalopathy [Recovered/Resolved]

NARRATIVE: CASE EVENT DATE: 20221112
